FAERS Safety Report 20222625 (Version 2)
Quarter: 2022Q2

REPORT INFORMATION
  Report Type: Spontaneous
  Country: GT (occurrence: GT)
  Receive Date: 20211223
  Receipt Date: 20220509
  Transmission Date: 20220721
  Serious: No
  Sender: FDA-Public Use
  Company Number: GT-NOVARTISPH-NVSC2021GT292916

PATIENT
  Sex: Female

DRUGS (1)
  1. GLIVEC [Suspect]
     Active Substance: IMATINIB MESYLATE
     Indication: Chronic myeloid leukaemia
     Dosage: 400 MG (1X 400 MG)
     Route: 065

REACTIONS (3)
  - Heavy menstrual bleeding [Unknown]
  - Ovarian cyst [Unknown]
  - Adnexa uteri pain [Unknown]
